FAERS Safety Report 23486055 (Version 2)
Quarter: 2024Q1

REPORT INFORMATION
  Report Type: Spontaneous
  Country: ES (occurrence: ES)
  Receive Date: 20240206
  Receipt Date: 20240208
  Transmission Date: 20240410
  Serious: Yes (Hospitalization, Other)
  Sender: FDA-Public Use
  Company Number: ES-AEMPS-1474030

PATIENT
  Age: 51 Year
  Sex: Female
  Weight: 48 kg

DRUGS (4)
  1. ACETAMINOPHEN [Suspect]
     Active Substance: ACETAMINOPHEN
     Indication: Pain
     Dosage: 1 GRAM, 3 TIMES A DAY (1 GRAMO CADA 8 HORAS POR VIA INTRAVENOSA HASTA EL 5 DE ENERO QUE SE PASA A V?
     Route: 042
     Dates: start: 20240101, end: 20240108
  2. ANIDULAFUNGIN [Suspect]
     Active Substance: ANIDULAFUNGIN
     Indication: Candida test positive
     Dosage: 100 MILLIGRAM, ONCE A DAY (100MG EN 130ML DE SOL. NACL 0,9% MIV 1 CADA 24 HORAS)
     Route: 042
     Dates: start: 20240104, end: 20240108
  3. SULFAMETHOXAZOLE\TRIMETHOPRIM [Suspect]
     Active Substance: SULFAMETHOXAZOLE\TRIMETHOPRIM
     Indication: Antifungal prophylaxis
     Dosage: 1 DOSAGE FORM, ONCE A DAY (400/80 MG CADA 24 HORAS POR V?A INTRAVENOSA, EN ALG?N MOMENTO SE PASA A V
     Route: 048
     Dates: start: 20231230
  4. TACROLIMUS [Suspect]
     Active Substance: TACROLIMUS
     Indication: Solid organ transplant
     Dosage: 4 MILLIGRAM, TWO TIMES A DAY
     Route: 048
     Dates: start: 20231229

REACTIONS (4)
  - Cholestasis [Recovering/Resolving]
  - Blood alkaline phosphatase increased [Recovering/Resolving]
  - Hypertransaminasaemia [Recovering/Resolving]
  - Hepatic enzyme increased [Recovering/Resolving]

NARRATIVE: CASE EVENT DATE: 20240105
